FAERS Safety Report 9106981 (Version 2)
Quarter: 2013Q1

REPORT INFORMATION
  Report Type: Other
  Country: DK (occurrence: NL)
  Receive Date: 20130221
  Receipt Date: 20130228
  Transmission Date: 20140127
  Serious: Yes (Hospitalization, Other)
  Sender: FDA-Public Use
  Company Number: NL-FRI-1000042659

PATIENT
  Age: 53 Year
  Sex: Female

DRUGS (4)
  1. CITALOPRAM [Suspect]
  2. AMITRIPTYLINE [Suspect]
  3. VENLAFAXINE [Suspect]
     Indication: DEPRESSION
  4. LORAZEPAM [Concomitant]
     Indication: DEPRESSION

REACTIONS (2)
  - Toxicity to various agents [Recovered/Resolved]
  - Overdose [Recovered/Resolved with Sequelae]
